FAERS Safety Report 5780002-3 (Version None)
Quarter: 2008Q2

REPORT INFORMATION
  Report Type: 
  Country: None (occurrence: None)
  Receive Date: 20080620
  Receipt Date: 20080613
  Transmission Date: 20081010
  Serious: Yes (Other)
  Sender: FDA-Public Use
  Company Number: US-BAYER-200825109NA

PATIENT
  Age: 72 Year
  Sex: Male
  Weight: 93 kg

DRUGS (9)
  1. CAMPATH [Suspect]
     Indication: CHRONIC LYMPHOCYTIC LEUKAEMIA
     Dosage: TOTAL DAILY DOSE: 30 MG
     Route: 058
     Dates: start: 20070801, end: 20080201
  2. CAMPATH [Suspect]
     Dosage: TOTAL DAILY DOSE: 30 MG
     Route: 058
     Dates: start: 20080201
  3. BENADRYL [Concomitant]
     Indication: PREMEDICATION
  4. TYLENOL [Concomitant]
     Indication: PREMEDICATION
  5. DEXAMETHASONE TAB [Concomitant]
     Indication: PREMEDICATION
  6. KEFLEX [Concomitant]
     Indication: LOCALISED INFECTION
     Dosage: TOTAL DAILY DOSE: 2000 MG
     Dates: start: 20080609
  7. FLUCONAZOLE [Concomitant]
     Indication: INFECTION PROPHYLAXIS
     Dosage: TOTAL DAILY DOSE: 50 MG
     Dates: start: 20070801
  8. ACYCLOVIR SODIUM [Concomitant]
     Indication: INFECTION PROPHYLAXIS
     Dosage: TOTAL DAILY DOSE: 1200 MG
     Dates: start: 20070801
  9. BACTRIM DS [Concomitant]
     Indication: INFECTION PROPHYLAXIS
     Dates: start: 20070801

REACTIONS (1)
  - HEAD AND NECK CANCER [None]
